FAERS Safety Report 9772693 (Version 1)
Quarter: 2013Q4

REPORT INFORMATION
  Report Type: Spontaneous
  Country: DE (occurrence: DE)
  Receive Date: 20131219
  Receipt Date: 20131219
  Transmission Date: 20140711
  Serious: Yes (Other)
  Sender: FDA-Public Use
  Company Number: DE-ACTAVIS-2013-22709

PATIENT
  Age: 68 Year
  Sex: Male
  Weight: 113 kg

DRUGS (4)
  1. DOCETAXEL (UNKNOWN) [Suspect]
     Indication: BREAST CANCER MALE
     Dosage: 100 MG/M2, DAILY
     Route: 042
     Dates: start: 20131021
  2. TRASTUZUMAB [Concomitant]
     Indication: PRODUCT USED FOR UNKNOWN INDICATION
     Dosage: 8-6 MG/KG
     Route: 042
     Dates: start: 20131021, end: 20131111
  3. GRANISETRON [Concomitant]
     Indication: PRODUCT USED FOR UNKNOWN INDICATION
     Dosage: 1 MG, UNK
     Route: 042
     Dates: start: 20130814
  4. DEXAMETHASON                       /00016001/ [Concomitant]
     Indication: PRODUCT USED FOR UNKNOWN INDICATION
     Dosage: 16 MG, UNK
     Route: 048
     Dates: start: 20130814

REACTIONS (1)
  - Acute polyneuropathy [Recovering/Resolving]
